FAERS Safety Report 15822418 (Version 1)
Quarter: 2019Q1

REPORT INFORMATION
  Report Type: Spontaneous
  Country: US (occurrence: US)
  Receive Date: 20190114
  Receipt Date: 20190114
  Transmission Date: 20190417
  Serious: Yes (Life-Threatening, Disabling)
  Sender: FDA-Public Use
  Company Number: None

PATIENT
  Age: 42 Year
  Sex: Female
  Weight: 67.95 kg

DRUGS (9)
  1. OXYCODONE [Suspect]
     Active Substance: OXYCODONE
     Indication: INTERVERTEBRAL DISC PROTRUSION
     Dosage: ?          QUANTITY:1 TABLET(S);?
     Route: 048
  2. OXYCODONE [Suspect]
     Active Substance: OXYCODONE
     Indication: NERVE INJURY
     Dosage: ?          QUANTITY:1 TABLET(S);?
     Route: 048
  3. VALIUM [Concomitant]
     Active Substance: DIAZEPAM
  4. FLEXARIL [Concomitant]
  5. OXYCODONE [Suspect]
     Active Substance: OXYCODONE
     Indication: INTERVERTEBRAL DISC DEGENERATION
     Dosage: ?          QUANTITY:1 TABLET(S);?
     Route: 048
  6. OXYCODONE [Suspect]
     Active Substance: OXYCODONE
     Indication: FIBROMYALGIA
     Dosage: ?          QUANTITY:1 TABLET(S);?
     Route: 048
  7. FIOROCET [Concomitant]
  8. OXYCODONE [Suspect]
     Active Substance: OXYCODONE
     Indication: MIGRAINE
     Dosage: ?          QUANTITY:1 TABLET(S);?
     Route: 048
  9. SYNTHROID [Concomitant]
     Active Substance: LEVOTHYROXINE SODIUM

REACTIONS (7)
  - Anxiety [None]
  - Migraine [None]
  - Hypertension [None]
  - Impaired work ability [None]
  - Muscle spasms [None]
  - Loss of personal independence in daily activities [None]
  - Pain in extremity [None]

NARRATIVE: CASE EVENT DATE: 20181112
